FAERS Safety Report 19015305 (Version 3)
Quarter: 2022Q1

REPORT INFORMATION
  Report Type: Report from Study
  Country: US (occurrence: US)
  Receive Date: 20210316
  Receipt Date: 20220221
  Transmission Date: 20220424
  Serious: Yes (Other)
  Sender: FDA-Public Use
  Company Number: US-TAKEDA-2021TUS016301

PATIENT
  Age: 71 Year
  Sex: Female
  Weight: 78.912 kg

DRUGS (39)
  1. .ALPHA.1-PROTEINASE INHIBITOR HUMAN [Suspect]
     Active Substance: .ALPHA.1-PROTEINASE INHIBITOR HUMAN
     Indication: Alpha-1 antitrypsin deficiency
     Dosage: 60 MILLIGRAM/KILOGRAM, 1/WEEK
     Route: 042
     Dates: start: 20090611
  2. .ALPHA.1-PROTEINASE INHIBITOR HUMAN [Suspect]
     Active Substance: .ALPHA.1-PROTEINASE INHIBITOR HUMAN
     Indication: Alpha-1 antitrypsin deficiency
     Dosage: 60 MILLIGRAM/KILOGRAM, 1/WEEK
     Route: 042
     Dates: start: 20090611
  3. .ALPHA.1-PROTEINASE INHIBITOR HUMAN [Suspect]
     Active Substance: .ALPHA.1-PROTEINASE INHIBITOR HUMAN
     Dosage: 4460 MILLIGRAM/KILOGRAM, 1/WEEK
     Route: 042
     Dates: start: 20090611
  4. .ALPHA.1-PROTEINASE INHIBITOR HUMAN [Suspect]
     Active Substance: .ALPHA.1-PROTEINASE INHIBITOR HUMAN
     Dosage: 4460 MILLIGRAM/KILOGRAM, 1/WEEK
     Route: 042
     Dates: start: 20090611
  5. .ALPHA.1-PROTEINASE INHIBITOR HUMAN [Suspect]
     Active Substance: .ALPHA.1-PROTEINASE INHIBITOR HUMAN
     Dosage: 60 MILLIGRAM/KILOGRAM
     Route: 042
     Dates: start: 20090625
  6. .ALPHA.1-PROTEINASE INHIBITOR HUMAN [Suspect]
     Active Substance: .ALPHA.1-PROTEINASE INHIBITOR HUMAN
     Dosage: 60 MILLIGRAM/KILOGRAM
     Route: 042
     Dates: start: 20090625
  7. .ALPHA.1-PROTEINASE INHIBITOR HUMAN [Suspect]
     Active Substance: .ALPHA.1-PROTEINASE INHIBITOR HUMAN
     Dosage: 60 MILLIGRAM/KILOGRAM
     Route: 042
     Dates: start: 20090222
  8. .ALPHA.1-PROTEINASE INHIBITOR HUMAN [Suspect]
     Active Substance: .ALPHA.1-PROTEINASE INHIBITOR HUMAN
     Dosage: 60 MILLIGRAM/KILOGRAM
     Route: 042
     Dates: start: 20090222
  9. .ALPHA.1-PROTEINASE INHIBITOR HUMAN [Suspect]
     Active Substance: .ALPHA.1-PROTEINASE INHIBITOR HUMAN
     Dosage: 4688 MILLIGRAM/KILOGRAM, 1/WEEK
     Route: 042
     Dates: start: 20090611
  10. .ALPHA.1-PROTEINASE INHIBITOR HUMAN [Suspect]
     Active Substance: .ALPHA.1-PROTEINASE INHIBITOR HUMAN
     Dosage: 4688 MILLIGRAM/KILOGRAM, 1/WEEK
     Route: 042
     Dates: start: 20090611
  11. DIPHENHYDRAMINE [Concomitant]
     Active Substance: DIPHENHYDRAMINE
  12. HEPARIN [Concomitant]
     Active Substance: HEPARIN SODIUM
  13. LIDOCAINE\PRILOCAINE [Concomitant]
     Active Substance: LIDOCAINE\PRILOCAINE
  14. SODIUM CHLORIDE [Concomitant]
     Active Substance: SODIUM CHLORIDE
  15. EPINEPHRINE [Concomitant]
     Active Substance: EPINEPHRINE
  16. VITAMIN B12 [Concomitant]
     Active Substance: CYANOCOBALAMIN
  17. OLOPATADINE [Concomitant]
     Active Substance: OLOPATADINE
  18. KENALOG [Concomitant]
     Active Substance: TRIAMCINOLONE ACETONIDE
  19. ELIQUIS [Concomitant]
     Active Substance: APIXABAN
  20. LOSARTAN [Concomitant]
     Active Substance: LOSARTAN
  21. ATENOLOL [Concomitant]
     Active Substance: ATENOLOL
  22. SINGULAIR [Concomitant]
     Active Substance: MONTELUKAST SODIUM
  23. ADVAIR HFA [Concomitant]
     Active Substance: FLUTICASONE PROPIONATE\SALMETEROL XINAFOATE
  24. LIPITOR [Concomitant]
     Active Substance: ATORVASTATIN CALCIUM
  25. VITAMIN C [Concomitant]
     Active Substance: ASCORBIC ACID
  26. CALCIUM 600-VIT D3 [Concomitant]
  27. ZYRTEC [Concomitant]
     Active Substance: CETIRIZINE HYDROCHLORIDE
  28. FOLIC ACID [Concomitant]
     Active Substance: FOLIC ACID
  29. COZAAR [Concomitant]
     Active Substance: LOSARTAN POTASSIUM
  30. ASPIRIN [Concomitant]
     Active Substance: ASPIRIN
  31. CHOLECALCIFEROL [Concomitant]
     Active Substance: CHOLECALCIFEROL
  32. OMEPRAZOLE [Concomitant]
     Active Substance: OMEPRAZOLE
  33. SPIRIVA [Concomitant]
     Active Substance: TIOTROPIUM BROMIDE MONOHYDRATE
  34. VITAMINS [Concomitant]
     Active Substance: VITAMINS
  35. TYLENOL ARTHRITIS PAIN [Concomitant]
     Active Substance: ACETAMINOPHEN
  36. VITAMIN D3 [Concomitant]
     Active Substance: CHOLECALCIFEROL
  37. LOSARTAN POTASSIUM [Concomitant]
     Active Substance: LOSARTAN POTASSIUM
  38. VITAMINS [Concomitant]
     Active Substance: VITAMINS
  39. OLOPATADINE HYDROCHLORIDE [Concomitant]
     Active Substance: OLOPATADINE HYDROCHLORIDE

REACTIONS (6)
  - Thrombosis [Unknown]
  - COVID-19 [Unknown]
  - Multiple allergies [Unknown]
  - Sinusitis [Unknown]
  - Pneumonitis [Unknown]
  - Malaise [Unknown]

NARRATIVE: CASE EVENT DATE: 20210201
